FAERS Safety Report 19919672 (Version 1)
Quarter: 2021Q4

REPORT INFORMATION
  Report Type: Spontaneous
  Country: NL (occurrence: DE)
  Receive Date: 20211005
  Receipt Date: 20211005
  Transmission Date: 20220303
  Serious: Yes (Other)
  Sender: FDA-Public Use
  Company Number: None

PATIENT
  Sex: Female

DRUGS (2)
  1. CARBOPLATIN [Suspect]
     Active Substance: CARBOPLATIN
     Indication: Ovarian cancer
     Route: 042
     Dates: start: 202106
  2. PACLITAXEL [Suspect]
     Active Substance: PACLITAXEL
     Indication: Ovarian cancer
     Route: 042
     Dates: start: 202106

REACTIONS (6)
  - Extrasystoles [Unknown]
  - General physical health deterioration [Unknown]
  - Dyspnoea at rest [Unknown]
  - Visual impairment [Unknown]
  - Adverse reaction [Unknown]
  - Headache [Unknown]

NARRATIVE: CASE EVENT DATE: 20210101
